FAERS Safety Report 4489543-2 (Version None)
Quarter: 2004Q4

REPORT INFORMATION
  Report Type: 
  Country: None (occurrence: None)
  Receive Date: 20041025
  Receipt Date: 20041013
  Transmission Date: 20050328
  Serious: Yes (Other)
  Sender: FDA-Public Use
  Company Number: IND-AE-04-SAN-005

PATIENT
  Age: 73 Year
  Sex: Female

DRUGS (4)
  1. SANCTURA [Suspect]
     Indication: URINARY INCONTINENCE
     Dosage: 20MG - BID - ORAL
     Route: 048
     Dates: start: 20040812, end: 20040901
  2. LISINOPRIL [Concomitant]
  3. BENDROFLUAZIDE [Concomitant]
  4. DICLOFENAC [Concomitant]

REACTIONS (2)
  - GASTROINTESTINAL HAEMORRHAGE [None]
  - HAEMATEMESIS [None]
